FAERS Safety Report 8477515-2 (Version None)
Quarter: 2012Q2

REPORT INFORMATION
  Report Type: 
  Country: None (occurrence: None)
  Receive Date: 20120629
  Receipt Date: 20120618
  Transmission Date: 20120825
  Serious: Yes (Other)
  Sender: FDA-Public Use
  Company Number: PHHY2011JP112713

PATIENT
  Sex: Male
  Weight: 50 kg

DRUGS (12)
  1. EXJADE [Suspect]
     Dosage: 625 MG, DAILY
     Route: 048
     Dates: start: 20110516, end: 20110523
  2. EXJADE [Suspect]
     Dosage: 750 MG, DAILY
     Route: 048
     Dates: start: 20110524, end: 20110924
  3. NEORAL [Suspect]
     Indication: APLASTIC ANAEMIA
     Dosage: 150 MG, DAILY
     Route: 048
     Dates: start: 20081015, end: 20110221
  4. EXJADE [Suspect]
     Dosage: 1000 MG, DAILY
     Route: 048
     Dates: start: 20111003, end: 20111015
  5. EXJADE [Suspect]
     Dosage: 500 MG, DAILY
     Route: 048
     Dates: start: 20110502, end: 20110515
  6. EXJADE [Suspect]
     Dosage: 875 MG, DAILY
     Route: 048
     Dates: start: 20110925, end: 20111002
  7. PRIMOBOLAN-DEPOT INJ [Concomitant]
     Indication: APLASTIC ANAEMIA
     Dosage: 150 MG, UNK
     Route: 048
     Dates: start: 20110207, end: 20111015
  8. PLATELETS [Concomitant]
  9. EXJADE [Suspect]
     Dosage: 500 MG, DAILY
     Route: 048
     Dates: start: 20090513, end: 20090818
  10. EXJADE [Suspect]
     Indication: IRON OVERLOAD
     Dosage: 500 MG, DAILY
     Route: 048
     Dates: start: 20081015, end: 20090121
  11. EXJADE [Suspect]
     Dosage: 250 MG, DAILY
     Route: 048
     Dates: start: 20090819, end: 20110501
  12. RED CELLS MAP [Concomitant]

REACTIONS (2)
  - RENAL DISORDER [None]
  - MYELODYSPLASTIC SYNDROME [None]
